FAERS Safety Report 7888638-0 (Version None)
Quarter: 2011Q4

REPORT INFORMATION
  Report Type: 
  Country: None (occurrence: None)
  Receive Date: 20111103
  Receipt Date: 20111102
  Transmission Date: 20120403
  Serious: Yes (Hospitalization, Other)
  Sender: FDA-Public Use
  Company Number: DE-ROCHE-707342

PATIENT
  Sex: Male
  Weight: 83 kg

DRUGS (7)
  1. METHOTREXATE SODIUM [Concomitant]
     Indication: RHEUMATOID ARTHRITIS
  2. CELEBREX [Concomitant]
     Indication: RHEUMATOID ARTHRITIS
     Dosage: AS REQUIRED
     Route: 048
  3. ACTEMRA [Suspect]
     Indication: RHEUMATOID ARTHRITIS
     Route: 042
     Dates: start: 20091204, end: 20100301
  4. ACTEMRA [Suspect]
     Route: 042
     Dates: start: 20100421, end: 20100421
  5. LEFLUNOMIDE [Suspect]
     Indication: RHEUMATOID ARTHRITIS
     Route: 048
     Dates: start: 20070301, end: 20100301
  6. PREDNISOLONE [Concomitant]
     Indication: RHEUMATOID ARTHRITIS
     Route: 048
  7. TAMSULOSIN HCL [Concomitant]
     Route: 048

REACTIONS (3)
  - HYPOCHROMIC ANAEMIA [None]
  - BRONCHITIS [None]
  - CYSTITIS [None]
